FAERS Safety Report 17226824 (Version 1)
Quarter: 2020Q1

REPORT INFORMATION
  Report Type: Report from Study
  Country: None (occurrence: US)
  Receive Date: 20200102
  Receipt Date: 20200102
  Transmission Date: 20200409
  Serious: Yes (Other)
  Sender: FDA-Public Use
  Company Number: US-ABBVIE-19K-163-3213748-00

PATIENT
  Age: 73 Year
  Sex: Female

DRUGS (1)
  1. CREON [Suspect]
     Active Substance: PANCRELIPASE AMYLASE\PANCRELIPASE LIPASE\PANCRELIPASE PROTEASE
     Indication: PRODUCT USED FOR UNKNOWN INDICATION
     Route: 048

REACTIONS (9)
  - Mammoplasty [Unknown]
  - Cardiac pacemaker insertion [Unknown]
  - Breast operation [Unknown]
  - Fracture treatment [Unknown]
  - Tendon sheath incision [Unknown]
  - Diagnostic aspiration [Unknown]
  - Foot deformity [Unknown]
  - Tonsillectomy [Unknown]
  - Adenoidectomy [Unknown]

NARRATIVE: CASE EVENT DATE: 201506
